FAERS Safety Report 6219346-X (Version None)
Quarter: 2009Q2

REPORT INFORMATION
  Report Type: 
  Country: None (occurrence: None)
  Receive Date: 20090609
  Receipt Date: 20090605
  Transmission Date: 20091009
  Serious: Yes (Death, Hospitalization)
  Sender: FDA-Public Use
  Company Number: CN-ASTRAZENECA-2009AP03302

PATIENT
  Age: 68 Year
  Sex: Male

DRUGS (5)
  1. IRESSA [Suspect]
     Indication: NON-SMALL CELL LUNG CANCER
     Route: 048
  2. GLABROUS SARCANDRA HERB EXTRACT [Concomitant]
     Indication: SMALL CELL LUNG CANCER STAGE UNSPECIFIED
  3. THYMOSIN [Concomitant]
     Indication: IMMUNOLOGY TEST
  4. CEFUROXIME [Concomitant]
     Indication: INFECTION
  5. YANSHU INJECTION [Concomitant]
     Indication: SMALL CELL LUNG CANCER STAGE UNSPECIFIED

REACTIONS (3)
  - AGITATION [None]
  - INTERSTITIAL LUNG DISEASE [None]
  - MICTURITION DISORDER [None]
